FAERS Safety Report 7257847-6 (Version None)
Quarter: 2011Q1

REPORT INFORMATION
  Report Type: 
  Country: None (occurrence: None)
  Receive Date: 20110129
  Receipt Date: 20100513
  Transmission Date: 20110831
  Serious: No
  Sender: FDA-Public Use
  Company Number: US-ABBOTT-10P-163-0645163-00

PATIENT
  Sex: Female
  Weight: 61.29 kg

DRUGS (4)
  1. HUMIRA [Suspect]
     Indication: RHEUMATOID ARTHRITIS
     Route: 058
     Dates: start: 20070101, end: 20090701
  2. HUMIRA [Suspect]
     Dates: start: 20050101, end: 20070101
  3. HUMIRA [Suspect]
     Route: 058
     Dates: start: 20090901
  4. AMOXICILLIN [Suspect]
     Indication: LYME DISEASE
     Dates: start: 20090701, end: 20090701

REACTIONS (8)
  - LYME DISEASE [None]
  - RHEUMATOID ARTHRITIS [None]
  - FATIGUE [None]
  - FURUNCLE [None]
  - ARTHRALGIA [None]
  - DRUG DOSE OMISSION [None]
  - URTICARIA [None]
  - FEELING ABNORMAL [None]
